FAERS Safety Report 9512082 (Version 2)
Quarter: 2013Q3

REPORT INFORMATION
  Report Type: Spontaneous
  Country: NO (occurrence: None)
  Receive Date: 20130906
  Receipt Date: 20130916
  Transmission Date: 20140515
  Serious: Yes (Other)
  Sender: FDA-Public Use
  Company Number: AUR-APL-2013-07342

PATIENT
  Age: 83 Year
  Sex: Female

DRUGS (2)
  1. DONEPEZIL [Suspect]
     Indication: PRODUCT USED FOR UNKNOWN INDICATION
  2. METOPROLOL [Suspect]

REACTIONS (5)
  - Atrioventricular block [None]
  - Bradycardia [None]
  - Chest pain [None]
  - Dyspnoea [None]
  - Nausea [None]
